FAERS Safety Report 8607344-8 (Version None)
Quarter: 2012Q3

REPORT INFORMATION
  Report Type: 
  Country: None (occurrence: None)
  Receive Date: 20120821
  Receipt Date: 20120817
  Transmission Date: 20120928
  Serious: No
  Sender: FDA-Public Use
  Company Number: US-PFIZER INC-2012203372

PATIENT
  Age: 42 Year
  Sex: Male
  Weight: 99.773 kg

DRUGS (1)
  1. EFFEXOR [Suspect]
     Indication: ANXIETY
     Dosage: 112.5 MG, DAILY
     Dates: start: 20100101

REACTIONS (1)
  - SOMNOLENCE [None]
